FAERS Safety Report 5643768-9 (Version None)
Quarter: 2008Q1

REPORT INFORMATION
  Report Type: 
  Country: None (occurrence: None)
  Receive Date: 20080226
  Receipt Date: 20080219
  Transmission Date: 20080703
  Serious: Yes (Hospitalization)
  Sender: FDA-Public Use
  Company Number: S07-USA-06424-01

PATIENT
  Age: 14 Year
  Sex: Female

DRUGS (3)
  1. LEXAPRO [Suspect]
     Indication: ANXIETY
     Dosage: 10 MG QD PO
     Route: 048
     Dates: start: 20041018, end: 20071022
  2. LEXAPRO [Suspect]
     Indication: ANXIETY
     Dosage: 20 MG QD PO
     Route: 048
     Dates: start: 20071023, end: 20071029
  3. MINOCYCLINE HCL [Concomitant]

REACTIONS (5)
  - CONVULSION [None]
  - DEHYDRATION [None]
  - DRUG INEFFECTIVE [None]
  - DYSKINESIA [None]
  - TREMOR [None]
